FAERS Safety Report 24468639 (Version 3)
Quarter: 2024Q4

REPORT INFORMATION
  Report Type: Spontaneous
  Country: PL (occurrence: PL)
  Receive Date: 20241018
  Receipt Date: 20241104
  Transmission Date: 20250115
  Serious: Yes (Life-Threatening, Hospitalization)
  Sender: BAUSCH AND LOMB
  Company Number: PL-MLMSERVICE-20241007-PI218803-00128-1

PATIENT
  Age: 5 Year
  Sex: Male

DRUGS (17)
  1. DEXAMETHASONE [Suspect]
     Active Substance: DEXAMETHASONE
     Indication: B precursor type acute leukaemia
     Dosage: STOPPED ON DAY 40 OF PROTOCOL II
     Route: 065
     Dates: start: 2023, end: 2023
  2. VINCRISTINE [Suspect]
     Active Substance: VINCRISTINE
     Indication: B precursor type acute leukaemia
     Route: 065
     Dates: start: 202303, end: 2023
  3. VINCRISTINE [Suspect]
     Active Substance: VINCRISTINE
     Dosage: SCHEDULED FOR FOUR DOSES/STOPPED ON DAY 40 OF PROTOCOL II
     Route: 065
     Dates: start: 2023, end: 2023
  4. DAUNORUBICIN [Suspect]
     Active Substance: DAUNORUBICIN
     Indication: B precursor type acute leukaemia
     Dosage: FOUR DOSES
     Route: 065
     Dates: start: 202303, end: 2023
  5. PEGASPARGASE [Suspect]
     Active Substance: PEGASPARGASE
     Indication: B precursor type acute leukaemia
     Dosage: TWO DOSES
     Route: 065
     Dates: start: 202303, end: 2023
  6. PEGASPARGASE [Suspect]
     Active Substance: PEGASPARGASE
     Dosage: SCHEDULED FOR ONE DOSE/STOPPED ON DAY 40 OF PROTOCOL II
     Route: 065
     Dates: start: 2023, end: 2023
  7. PEGASPARGASE [Suspect]
     Active Substance: PEGASPARGASE
  8. MERCAPTOPURINE [Suspect]
     Active Substance: MERCAPTOPURINE
     Indication: B precursor type acute leukaemia
     Route: 065
     Dates: start: 2023, end: 2023
  9. MERCAPTOPURINE [Suspect]
     Active Substance: MERCAPTOPURINE
     Route: 065
     Dates: start: 2023, end: 2023
  10. METHOTREXATE [Suspect]
     Active Substance: METHOTREXATE
     Indication: B precursor type acute leukaemia
     Dosage: 5 G/M2 INFUSION (FOUR DOSES)
     Route: 065
     Dates: start: 2023, end: 2023
  11. METHOTREXATE [Suspect]
     Active Substance: METHOTREXATE
     Dosage: FOUR DOSES
     Route: 037
     Dates: start: 2023, end: 2023
  12. DOXORUBICIN [Suspect]
     Active Substance: DOXORUBICIN
     Indication: B precursor type acute leukaemia
     Dosage: SCHEDULED FOR FOUR DOSES/STOPPED ON DAY 40 OF PROTOCOL II
     Route: 065
     Dates: start: 2023, end: 2023
  13. THIOGUANINE [Suspect]
     Active Substance: THIOGUANINE
     Indication: B precursor type acute leukaemia
     Dosage: STOPPED ON DAY 40 OF PROTOCOL II
     Route: 065
     Dates: start: 2023, end: 2023
  14. CYTARABINE [Suspect]
     Active Substance: CYTARABINE
     Indication: B precursor type acute leukaemia
     Route: 065
     Dates: start: 2023, end: 2023
  15. CYCLOPHOSPHAMIDE [Suspect]
     Active Substance: CYCLOPHOSPHAMIDE
     Indication: B precursor type acute leukaemia
     Route: 065
     Dates: start: 2023, end: 2023
  16. FLUCONAZOLE [Concomitant]
     Active Substance: FLUCONAZOLE
     Indication: Antifungal prophylaxis
     Route: 048
     Dates: start: 2023
  17. COTRIMOXAZOLE [Concomitant]
     Active Substance: SULFAMETHOXAZOLE\TRIMETHOPRIM
     Indication: Antifungal prophylaxis
     Route: 048
     Dates: start: 2023

REACTIONS (14)
  - Neutropenia [Recovering/Resolving]
  - Hypertriglyceridaemia [Recovering/Resolving]
  - Respiratory failure [Recovering/Resolving]
  - Pneumocystis jirovecii infection [Recovering/Resolving]
  - Systemic mycosis [Recovering/Resolving]
  - Pathogen resistance [Recovering/Resolving]
  - Citrobacter infection [Recovering/Resolving]
  - Klebsiella infection [Recovering/Resolving]
  - Staphylococcal infection [Recovering/Resolving]
  - Enterococcal infection [Recovering/Resolving]
  - Morganella infection [Recovering/Resolving]
  - Candida infection [Recovering/Resolving]
  - Parainfluenzae virus infection [Recovering/Resolving]
  - Bronchopulmonary aspergillosis [Recovering/Resolving]

NARRATIVE: CASE EVENT DATE: 20230101
